FAERS Safety Report 16856062 (Version 1)
Quarter: 2019Q3

REPORT INFORMATION
  Report Type: Spontaneous
  Country: DE (occurrence: DE)
  Receive Date: 20190926
  Receipt Date: 20190926
  Transmission Date: 20191005
  Serious: Yes (Other)
  Sender: FDA-Public Use
  Company Number: DE-MYLANLABS-2019M1089021

PATIENT
  Age: 66 Year
  Sex: Female

DRUGS (2)
  1. ERIBULIN [Suspect]
     Active Substance: ERIBULIN
     Indication: PRODUCT USED FOR UNKNOWN INDICATION
     Dosage: UNK
     Route: 065
     Dates: start: 201605, end: 201609
  2. ZOLEDRONIC ACID [Suspect]
     Active Substance: ZOLEDRONIC ACID
     Indication: BREAST CANCER
     Route: 065

REACTIONS (4)
  - Malignant neoplasm progression [Unknown]
  - Metastases to lung [Unknown]
  - Breast cancer [Unknown]
  - Metastases to liver [Unknown]

NARRATIVE: CASE EVENT DATE: 201702
